FAERS Safety Report 16674057 (Version 2)
Quarter: 2019Q4

REPORT INFORMATION
  Report Type: Report from Study
  Country: CA (occurrence: CA)
  Receive Date: 20190806
  Receipt Date: 20191118
  Transmission Date: 20200122
  Serious: Yes (Hospitalization, Other)
  Sender: FDA-Public Use
  Company Number: CA-INCYTE CORPORATION-2019IN007742

PATIENT

DRUGS (1)
  1. JAKAVI [Suspect]
     Active Substance: RUXOLITINIB
     Indication: MYELOFIBROSIS
     Dosage: 10 MG, BID
     Route: 048
     Dates: start: 20190404

REACTIONS (5)
  - Haemoglobin decreased [Recovered/Resolved]
  - Myocardial infarction [Unknown]
  - Dizziness [Unknown]
  - Cerebrovascular accident [Unknown]
  - Skin ulcer [Unknown]

NARRATIVE: CASE EVENT DATE: 201906
